FAERS Safety Report 7198707-9 (Version None)
Quarter: 2010Q4

REPORT INFORMATION
  Report Type: 
  Country: None (occurrence: None)
  Receive Date: 20101227
  Receipt Date: 20101216
  Transmission Date: 20110411
  Serious: Yes (Other)
  Sender: FDA-Public Use
  Company Number: US-JNJFOC-20101102898

PATIENT
  Sex: Female

DRUGS (6)
  1. STELARA [Suspect]
     Indication: PSORIASIS
     Route: 058
  2. STELARA [Suspect]
     Route: 058
  3. ACIPHEX [Concomitant]
  4. GABAPENTIN [Concomitant]
  5. ZANAFLEX [Concomitant]
  6. CALCIUM [Concomitant]

REACTIONS (2)
  - ABDOMINAL DISCOMFORT [None]
  - COGNITIVE DISORDER [None]
